FAERS Safety Report 24757564 (Version 2)
Quarter: 2025Q3

REPORT INFORMATION
  Report Type: Other
  Country: CA (occurrence: CA)
  Receive Date: 20241220
  Receipt Date: 20250822
  Transmission Date: 20251021
  Serious: Yes (Disabling, Other)
  Sender: APOTEX
  Company Number: CA-APOTEX-2024AP019716

PATIENT
  Sex: Female

DRUGS (12)
  1. ARIPIPRAZOLE [Suspect]
     Active Substance: ARIPIPRAZOLE
     Indication: Schizoaffective disorder
     Route: 065
  2. CLOZAPINE [Suspect]
     Active Substance: CLOZAPINE
     Indication: Schizoaffective disorder
     Dosage: 400 MILLIGRAM, QD
     Route: 065
  3. LORAZEPAM [Suspect]
     Active Substance: LORAZEPAM
     Indication: Schizoaffective disorder
     Dosage: 1 MILLIGRAM, BID
     Route: 065
  4. LORAZEPAM [Suspect]
     Active Substance: LORAZEPAM
     Indication: Major depression
     Dosage: 20 MILLIGRAM, QD
     Route: 065
  5. LORAZEPAM [Suspect]
     Active Substance: LORAZEPAM
     Indication: Generalised anxiety disorder
     Route: 065
  6. OLANZAPINE [Suspect]
     Active Substance: OLANZAPINE
     Indication: Schizoaffective disorder
     Dosage: 20 MILLIGRAM, QD
     Route: 065
  7. QUETIAPINE [Suspect]
     Active Substance: QUETIAPINE
     Indication: Schizoaffective disorder
     Dosage: 400 MILLIGRAM, QD
     Route: 065
  8. SERTRALINE [Suspect]
     Active Substance: SERTRALINE HYDROCHLORIDE
     Indication: Schizoaffective disorder
     Dosage: 200 MILLIGRAM, QD
     Route: 065
  9. SERTRALINE [Suspect]
     Active Substance: SERTRALINE HYDROCHLORIDE
     Indication: Major depression
  10. SERTRALINE [Suspect]
     Active Substance: SERTRALINE HYDROCHLORIDE
     Indication: Generalised anxiety disorder
  11. PALIPERIDONE [Suspect]
     Active Substance: PALIPERIDONE
     Indication: Schizoaffective disorder
     Route: 065
  12. PALIPERIDONE [Suspect]
     Active Substance: PALIPERIDONE
     Route: 065

REACTIONS (4)
  - Parkinsonism [Recovering/Resolving]
  - Dyskinesia [Recovering/Resolving]
  - Dystonia [Recovering/Resolving]
  - Tardive dyskinesia [Recovering/Resolving]
